FAERS Safety Report 19895045 (Version 2)
Quarter: 2022Q4

REPORT INFORMATION
  Report Type: Spontaneous
  Country: US (occurrence: None)
  Receive Date: 20210929
  Receipt Date: 20221116
  Transmission Date: 20230112
  Serious: Yes (Other)
  Sender: FDA-Public Use
  Company Number: US-HIKMA PHARMACEUTICALS USA INC.-US-H14001-21-04132

PATIENT
  Age: 29 Year
  Sex: Female

DRUGS (1)
  1. KETAMINE [Suspect]
     Active Substance: KETAMINE
     Indication: Product used for unknown indication
     Dosage: UNKNOWN
     Route: 065

REACTIONS (13)
  - Hydronephrosis [Recovering/Resolving]
  - Kidney fibrosis [Unknown]
  - Bladder hypertrophy [Unknown]
  - Ureteral disorder [Unknown]
  - Hyperplasia [Unknown]
  - Tissue infiltration [Unknown]
  - Hepatocellular injury [Unknown]
  - Hepatitis B [Unknown]
  - Urinary tract disorder [Unknown]
  - Acute kidney injury [Recovering/Resolving]
  - Drug abuse [Unknown]
  - Drug dependence [Unknown]
  - Biliary tract disorder [Unknown]
